FAERS Safety Report 4952195-9 (Version None)
Quarter: 2006Q1

REPORT INFORMATION
  Report Type: 
  Country: None (occurrence: None)
  Receive Date: 20060317
  Receipt Date: 20060302
  Transmission Date: 20060701
  Serious: Yes (Death, Other)
  Sender: FDA-Public Use
  Company Number: 2005-02553

PATIENT
  Age: 61 Year
  Sex: Female
  Weight: 82 kg

DRUGS (4)
  1. VELCADE [Suspect]
     Indication: MULTIPLE MYELOMA
     Dosage: 2.30 MG, SINGLE, INTRATHECAL
     Route: 037
     Dates: start: 20051212, end: 20051212
  2. METHOTREXATE [Suspect]
     Indication: MULTIPLE MYELOMA
     Dosage: SINGLE, INTRATHECAL
     Route: 037
     Dates: start: 20051212, end: 20051212
  3. MELPHALAN               (MELPHALAN)                      VIAL [Suspect]
     Indication: MULTIPLE MYELOMA
     Dosage: INTRATHECAL
     Route: 037
     Dates: start: 20051212, end: 20051212
  4. HYDROCORTISONE [Suspect]
     Indication: MULTIPLE MYELOMA
     Dosage: INTRATHECAL
     Route: 037
     Dates: start: 20051212, end: 20051212

REACTIONS (9)
  - COMA [None]
  - CONDITION AGGRAVATED [None]
  - INCORRECT ROUTE OF DRUG ADMINISTRATION [None]
  - INTRACRANIAL PRESSURE INCREASED [None]
  - LUNG DISORDER [None]
  - MENINGITIS [None]
  - MULTIPLE MYELOMA [None]
  - PNEUMONIA ASPIRATION [None]
  - SOMNOLENCE [None]
